FAERS Safety Report 20729790 (Version 1)
Quarter: 2022Q2

REPORT INFORMATION
  Report Type: Spontaneous
  Country: US (occurrence: None)
  Receive Date: 20220420
  Receipt Date: 20220420
  Transmission Date: 20220720
  Serious: Yes (Other)
  Sender: FDA-Public Use
  Company Number: 2022A149734

PATIENT
  Sex: Male
  Weight: 68.5 kg

DRUGS (2)
  1. BYDUREON BCISE [Interacting]
     Active Substance: EXENATIDE
     Indication: Type 2 diabetes mellitus
     Route: 058
  2. ATORVASTATIN [Interacting]
     Active Substance: ATORVASTATIN
     Route: 065

REACTIONS (15)
  - Furuncle [Not Recovered/Not Resolved]
  - Gastric disorder [Recovered/Resolved]
  - Blood glucose abnormal [Not Recovered/Not Resolved]
  - Palpitations [Not Recovered/Not Resolved]
  - Malaise [Recovered/Resolved]
  - Abdominal pain upper [Recovered/Resolved]
  - Abdominal pain [Recovered/Resolved]
  - Bowel movement irregularity [Recovered/Resolved]
  - Diarrhoea [Recovered/Resolved]
  - Constipation [Recovered/Resolved]
  - Blood glucose increased [Recovered/Resolved]
  - Feeling abnormal [Unknown]
  - Pain [Unknown]
  - Chest discomfort [Unknown]
  - Drug interaction [Unknown]
